FAERS Safety Report 5369024-4 (Version None)
Quarter: 2007Q2

REPORT INFORMATION
  Report Type: 
  Country: None (occurrence: None)
  Receive Date: 20070625
  Receipt Date: 20061218
  Transmission Date: 20071010
  Serious: Yes (Hospitalization)
  Sender: FDA-Public Use
  Company Number: US-ASTRAZENECA-2006UW28082

PATIENT
  Age: 50 Year
  Sex: Male
  Weight: 109 kg

DRUGS (10)
  1. ROSUVASTATIN [Suspect]
     Indication: DYSLIPIDAEMIA
     Route: 048
     Dates: start: 20060818
  2. ABT-335 [Suspect]
     Indication: DYSLIPIDAEMIA
     Route: 048
     Dates: start: 20060818
  3. GABAPENTIN [Concomitant]
     Indication: RESTLESS LEGS SYNDROME
     Route: 048
     Dates: start: 20060109
  4. LEVOTHYROXINE SODIUM [Concomitant]
     Indication: HYPOTHYROIDISM
     Route: 048
     Dates: start: 20030101
  5. POTASSIUM CHLORIDE [Concomitant]
     Indication: BLOOD POTASSIUM DECREASED
     Dates: start: 20050101
  6. LISINOPRIL [Concomitant]
     Indication: HYPERTENSION
     Dates: start: 19980101
  7. FUROSEMIDE [Concomitant]
     Indication: HYPERTENSION
     Dates: start: 20050101
  8. OMEPRAZOLE [Concomitant]
     Indication: GASTROOESOPHAGEAL REFLUX DISEASE
     Dates: start: 20050101, end: 20060921
  9. ACETYLSALICYLIC ACID SRT [Concomitant]
     Indication: CARDIOVASCULAR EVENT PROPHYLAXIS
     Dates: start: 20000101
  10. CYCLOBENZAPRINE HCL [Concomitant]
     Indication: RESTLESS LEGS SYNDROME
     Dates: start: 20050101

REACTIONS (3)
  - DYSPNOEA [None]
  - HYPOAESTHESIA [None]
  - NON-CARDIAC CHEST PAIN [None]
